FAERS Safety Report 8047931-1 (Version None)
Quarter: 2012Q1

REPORT INFORMATION
  Report Type: 
  Country: None (occurrence: None)
  Receive Date: 20120116
  Receipt Date: 20120103
  Transmission Date: 20120608
  Serious: Yes (Death, Hospitalization)
  Sender: FDA-Public Use
  Company Number: US-ABBOTT-12P-163-0892095-00

PATIENT
  Sex: Male

DRUGS (9)
  1. DIURETICS [Concomitant]
     Indication: PRODUCT USED FOR UNKNOWN INDICATION
  2. NIASPAN [Suspect]
     Indication: ARTERIOSCLEROSIS
     Route: 048
     Dates: start: 20071015, end: 20071126
  3. SIMVASTATIN [Concomitant]
     Indication: DYSLIPIDAEMIA
  4. ASPIRIN [Concomitant]
     Indication: PRODUCT USED FOR UNKNOWN INDICATION
  5. PLAVIX [Concomitant]
     Indication: PRODUCT USED FOR UNKNOWN INDICATION
  6. BETA-BLOCKERS [Concomitant]
     Indication: PRODUCT USED FOR UNKNOWN INDICATION
  7. NIASPAN [Suspect]
     Indication: DYSLIPIDAEMIA
  8. SIMVASTATIN [Concomitant]
     Indication: ARTERIOSCLEROSIS
     Route: 048
     Dates: start: 20071015, end: 20071126
  9. CALCIUM CHANNEL BLOCKERS [Concomitant]
     Indication: PRODUCT USED FOR UNKNOWN INDICATION

REACTIONS (2)
  - SEPSIS [None]
  - MYOCARDIAL INFARCTION [None]
